FAERS Safety Report 7317138-1 (Version None)
Quarter: 2011Q1

REPORT INFORMATION
  Report Type: 
  Country: None (occurrence: None)
  Receive Date: 20110226
  Receipt Date: 20101001
  Transmission Date: 20110831
  Serious: No
  Sender: FDA-Public Use
  Company Number: US-ALLERGAN-1012655US

PATIENT
  Age: 38 Year
  Sex: Female

DRUGS (2)
  1. BOTOXA? [Suspect]
     Indication: NECK PAIN
     Dosage: 100 UNITS, SINGLE
     Route: 030
     Dates: start: 20100929, end: 20100929
  2. BOTOXA? [Suspect]
     Indication: HEADACHE
     Dosage: 100 UNITS, SINGLE
     Route: 030
     Dates: start: 20100624, end: 20100624

REACTIONS (8)
  - FEELING ABNORMAL [None]
  - DYSPNOEA [None]
  - TREMOR [None]
  - PALPITATIONS [None]
  - CHEST DISCOMFORT [None]
  - PARAESTHESIA ORAL [None]
  - MUSCULAR WEAKNESS [None]
  - NAUSEA [None]
